FAERS Safety Report 19694232 (Version 3)
Quarter: 2021Q4

REPORT INFORMATION
  Report Type: Report from Study
  Country: US (occurrence: US)
  Receive Date: 20210812
  Receipt Date: 20211112
  Transmission Date: 20220303
  Serious: Yes (Other)
  Sender: FDA-Public Use
  Company Number: NVSC2021US175284

PATIENT
  Sex: Female

DRUGS (2)
  1. PIQRAY [Suspect]
     Active Substance: ALPELISIB
     Indication: Breast cancer
     Dosage: 300 MG, QD
     Route: 048
     Dates: end: 20211020
  2. FULVESTRANT [Suspect]
     Active Substance: FULVESTRANT
     Indication: Product used for unknown indication
     Dosage: UNK UNK, QMO
     Route: 065

REACTIONS (10)
  - Neuropathy peripheral [Recovering/Resolving]
  - Energy increased [Not Recovered/Not Resolved]
  - Nail growth abnormal [Recovering/Resolving]
  - Skin lesion [Not Recovered/Not Resolved]
  - Hair growth abnormal [Recovering/Resolving]
  - Pain of skin [Not Recovered/Not Resolved]
  - Blood pressure increased [Not Recovered/Not Resolved]
  - Hyperglycaemia [Recovering/Resolving]
  - Blood glucose increased [Recovering/Resolving]
  - Diarrhoea [Recovering/Resolving]
